FAERS Safety Report 8841702 (Version 2)
Quarter: 2013Q2

REPORT INFORMATION
  Report Type: Spontaneous
  Country: US (occurrence: None)
  Receive Date: 20121011
  Receipt Date: 20130507
  Transmission Date: 20140414
  Serious: Yes (Death, Hospitalization, Other)
  Sender: FDA-Public Use
  Company Number: ADR-2012-01843

PATIENT
  Age: 48 Year
  Sex: Male

DRUGS (1)
  1. LIORESAL INTRATHECAL (BACLOFEN INJECTION) [Suspect]
     Indication: MUSCLE SPASTICITY
     Dosage: 110.0 MCG/ DAY

REACTIONS (5)
  - Post procedural complication [None]
  - Arrhythmia [None]
  - Respiratory failure [None]
  - Pyrexia [None]
  - Cardio-respiratory arrest [None]
